FAERS Safety Report 9787782 (Version 1)
Quarter: 2013Q4

REPORT INFORMATION
  Report Type: Spontaneous
  Country: US (occurrence: US)
  Receive Date: 20131230
  Receipt Date: 20131230
  Transmission Date: 20140711
  Serious: No
  Sender: FDA-Public Use
  Company Number: US-PFIZER INC-2013372823

PATIENT
  Sex: Female

DRUGS (2)
  1. LYRICA [Suspect]
     Indication: NECK PAIN
     Dosage: 75 MG, 2X/DAY
     Dates: start: 2013
  2. LYRICA [Suspect]
     Dosage: 200 MG, 2X/DAY
     Dates: start: 2013

REACTIONS (10)
  - Vision blurred [Unknown]
  - Exercise tolerance decreased [Unknown]
  - Thinking abnormal [Unknown]
  - Bradyphrenia [Unknown]
  - Weight increased [Unknown]
  - Increased appetite [Unknown]
  - Fatigue [Unknown]
  - Dry mouth [Unknown]
  - Depression [Unknown]
  - Pollakiuria [Unknown]
